FAERS Safety Report 11046223 (Version 5)
Quarter: 2023Q4

REPORT INFORMATION
  Report Type: Spontaneous
  Country: FR (occurrence: FR)
  Receive Date: 20150418
  Receipt Date: 20231109
  Transmission Date: 20240110
  Serious: Yes (Death, Hospitalization, Other)
  Sender: FDA-Public Use
  Company Number: FR-AUROBINDO-AUR-APL-2015-03294

PATIENT
  Age: 58 Year
  Sex: Male

DRUGS (28)
  1. CEFTAZIDIME [Suspect]
     Active Substance: CEFTAZIDIME
     Indication: Pyrexia
     Dosage: UNK
     Route: 065
  2. CIPROFLOXACIN [Suspect]
     Active Substance: CIPROFLOXACIN
     Indication: Proteus test positive
     Dosage: UNK
     Route: 065
  3. CIPROFLOXACIN [Suspect]
     Active Substance: CIPROFLOXACIN
     Indication: Culture stool positive
  4. PIPERACILLIN AND TAZOBACTAM [Suspect]
     Active Substance: PIPERACILLIN SODIUM\TAZOBACTAM SODIUM
     Indication: Pyrexia
     Dosage: UNK
     Route: 065
  5. AMSACRINE [Suspect]
     Active Substance: AMSACRINE
     Indication: Chronic myeloid leukaemia
     Dosage: UNK
     Route: 065
  6. AMSACRINE [Suspect]
     Active Substance: AMSACRINE
     Indication: Chemotherapy
  7. AMIKACIN [Suspect]
     Active Substance: AMIKACIN
     Indication: Pyrexia
     Dosage: UNK
     Route: 065
  8. AMIKACIN [Suspect]
     Active Substance: AMIKACIN
     Indication: Proteus test positive
  9. CYCLOSPORINE [Suspect]
     Active Substance: CYCLOSPORINE
     Indication: Prophylaxis
     Dosage: 3 MILLIGRAM/KILOGRAM, DAILY (3 MG/KG, DAILY)
     Route: 065
  10. CYCLOSPORINE [Suspect]
     Active Substance: CYCLOSPORINE
     Indication: Aspergillus test positive
  11. CYCLOSPORINE [Suspect]
     Active Substance: CYCLOSPORINE
     Indication: Stem cell transplant
  12. CYCLOSPORINE [Suspect]
     Active Substance: CYCLOSPORINE
     Indication: Prophylaxis against graft versus host disease
  13. CYTARABINE [Suspect]
     Active Substance: CYTARABINE
     Indication: Chronic myeloid leukaemia
     Dosage: UNK
     Route: 065
  14. CYTARABINE [Suspect]
     Active Substance: CYTARABINE
     Indication: Chemotherapy
  15. CYCLOPHOSPHAMIDE [Suspect]
     Active Substance: CYCLOPHOSPHAMIDE
     Indication: Chronic myeloid leukaemia
     Dosage: UNK
     Route: 065
  16. CYCLOPHOSPHAMIDE [Suspect]
     Active Substance: CYCLOPHOSPHAMIDE
     Indication: Prophylaxis against graft versus host disease
  17. CYCLOPHOSPHAMIDE [Suspect]
     Active Substance: CYCLOPHOSPHAMIDE
     Indication: Allogenic stem cell transplantation
  18. CYCLOPHOSPHAMIDE [Suspect]
     Active Substance: CYCLOPHOSPHAMIDE
     Indication: Bone marrow conditioning regimen
  19. FLUDARABINE [Suspect]
     Active Substance: FLUDARABINE PHOSPHATE
     Indication: Chronic myeloid leukaemia
     Dosage: UNK
     Route: 065
  20. IMIPENEM [Suspect]
     Active Substance: IMIPENEM
     Indication: Pyrexia
     Dosage: UNK
     Route: 065
  21. METRONIDAZOLE [Suspect]
     Active Substance: METRONIDAZOLE
     Indication: Product used for unknown indication
     Dosage: UNK
     Route: 042
  22. MYCOPHENOLATE MOFETIL [Suspect]
     Active Substance: MYCOPHENOLATE MOFETIL
     Indication: Prophylaxis
     Dosage: 15 MILLIGRAM/KILOGRAM, DAILY (15 MG/KG, DAILY)
     Route: 065
  23. MYCOPHENOLATE MOFETIL [Suspect]
     Active Substance: MYCOPHENOLATE MOFETIL
     Indication: Stem cell transplant
  24. MYCOPHENOLATE MOFETIL [Suspect]
     Active Substance: MYCOPHENOLATE MOFETIL
     Indication: Allogenic stem cell transplantation
  25. VANCOMYCIN [Suspect]
     Active Substance: VANCOMYCIN
     Indication: Product used for unknown indication
     Dosage: UNK
     Route: 048
  26. VORICONAZOLE [Suspect]
     Active Substance: VORICONAZOLE
     Indication: Aspergillus test positive
     Dosage: UNK
     Route: 065
  27. LAPINE T-LYMPHOCYTE IMMUNE GLOBULIN [Suspect]
     Active Substance: LAPINE T-LYMPHOCYTE IMMUNE GLOBULIN
     Indication: Allogenic stem cell transplantation
     Dosage: UNK
     Route: 065
  28. LENOGRASTIM [Concomitant]
     Active Substance: LENOGRASTIM
     Indication: Bone marrow conditioning regimen
     Dosage: FROM D1 TO D4
     Route: 065

REACTIONS (26)
  - Aspergillus infection [Fatal]
  - Clostridium difficile infection [Fatal]
  - Clostridium difficile colitis [Fatal]
  - Dyspnoea [Fatal]
  - Diarrhoea [Fatal]
  - Death [Fatal]
  - Hypoxia [Fatal]
  - Hallucination [Fatal]
  - Graft versus host disease [Fatal]
  - Vomiting [Fatal]
  - Pyrexia [Fatal]
  - Rash erythematous [Fatal]
  - Multiple organ dysfunction syndrome [Fatal]
  - Acute graft versus host disease [Fatal]
  - Rash [Fatal]
  - Large intestine infection [Fatal]
  - Dermatitis infected [Fatal]
  - Bronchopulmonary aspergillosis [Fatal]
  - Aspergillus test positive [Unknown]
  - Cough [Unknown]
  - Colitis [Unknown]
  - Clostridium test positive [Unknown]
  - Condition aggravated [Unknown]
  - Haemodynamic instability [Unknown]
  - Intestinal ulcer [Unknown]
  - Proteus test positive [Unknown]
